FAERS Safety Report 25028311 (Version 5)
Quarter: 2025Q3

REPORT INFORMATION
  Report Type: Spontaneous
  Country: US (occurrence: US)
  Receive Date: 20250301
  Receipt Date: 20250811
  Transmission Date: 20251021
  Serious: Yes (Other)
  Sender: SANOFI AVENTIS
  Company Number: US-SA-2025SA060159

PATIENT
  Age: 16 Year
  Sex: Female

DRUGS (4)
  1. DUPIXENT [Suspect]
     Active Substance: DUPILUMAB
     Indication: Dermatitis atopic
     Route: 058
     Dates: start: 202502, end: 202502
  2. DUPIXENT [Suspect]
     Active Substance: DUPILUMAB
     Indication: Eczema
     Dosage: 200 MG, QOW
     Route: 058
     Dates: start: 202502
  3. OLANZAPINE [Concomitant]
     Active Substance: OLANZAPINE
     Indication: Aggression
     Dates: start: 20250501, end: 2025
  4. ATIVAN [Concomitant]
     Active Substance: LORAZEPAM
     Indication: Aggression
     Dates: start: 20250501, end: 2025

REACTIONS (12)
  - Pulmonary congestion [Recovered/Resolved]
  - Lethargy [Unknown]
  - Condition aggravated [Unknown]
  - Anxiety [Not Recovered/Not Resolved]
  - Pyrexia [Unknown]
  - COVID-19 [Unknown]
  - Eye pain [Recovering/Resolving]
  - Visual impairment [Recovering/Resolving]
  - Dry eye [Unknown]
  - Dermatitis atopic [Unknown]
  - Inappropriate schedule of product administration [Unknown]
  - Off label use [Unknown]

NARRATIVE: CASE EVENT DATE: 20250101
